FAERS Safety Report 9278638 (Version 1)
Quarter: 2013Q2

REPORT INFORMATION
  Report Type: Spontaneous
  Country: US (occurrence: None)
  Receive Date: 20130506
  Receipt Date: 20130506
  Transmission Date: 20140414
  Serious: Yes (Life-Threatening, Hospitalization)
  Sender: FDA-Public Use
  Company Number: None

PATIENT
  Age: 58 Year
  Sex: Female

DRUGS (1)
  1. PROTAMINE SULFATE [Suspect]
     Route: 042
     Dates: start: 20130425, end: 20130425

REACTIONS (1)
  - Haemodynamic instability [None]
